FAERS Safety Report 7475191-9 (Version None)
Quarter: 2011Q2

REPORT INFORMATION
  Report Type: 
  Country: None (occurrence: None)
  Receive Date: 20110512
  Receipt Date: 20110408
  Transmission Date: 20111010
  Serious: Yes (Hospitalization, Other)
  Sender: FDA-Public Use
  Company Number: US-BAYER-2010-009220

PATIENT
  Age: 20 Year
  Sex: Female
  Weight: 78.458 kg

DRUGS (8)
  1. VITAMIN D [Concomitant]
  2. YASMIN [Suspect]
     Indication: ORAL CONTRACEPTION
  3. DROSPIRENONE AND ETHINYL ESTRADIOL [Suspect]
     Indication: ORAL CONTRACEPTION
  4. ATIVAN [Concomitant]
     Indication: ANXIETY
     Dosage: 5 MG, QID
  5. ZYRTEC-D 12 HOUR [Concomitant]
     Indication: MULTIPLE ALLERGIES
     Dosage: UNK
     Dates: start: 20030101
  6. PROZAC [Concomitant]
     Dosage: 20 MG, UNK
  7. SINGULAIR [Concomitant]
     Dosage: 10 MG, QD
  8. ANCEF [Concomitant]

REACTIONS (6)
  - PAIN [None]
  - CHOLELITHIASIS [None]
  - CHOLECYSTITIS CHRONIC [None]
  - ABDOMINAL PAIN UPPER [None]
  - INJURY [None]
  - ABDOMINAL PAIN [None]
